FAERS Safety Report 12176037 (Version 1)
Quarter: 2016Q1

REPORT INFORMATION
  Report Type: Report from Study
  Country: US (occurrence: US)
  Receive Date: 20160314
  Receipt Date: 20160314
  Transmission Date: 20160526
  Serious: Yes (Hospitalization, Other)
  Sender: FDA-Public Use
  Company Number: US-INDIVIOR LIMITED-INDV-088658-2016

PATIENT
  Age: 34 Year
  Sex: Male

DRUGS (3)
  1. METHADONE [Suspect]
     Active Substance: METHADONE HYDROCHLORIDE
     Indication: PRODUCT USED FOR UNKNOWN INDICATION
     Dosage: UNK, METHADONE PRIOR TO BEING PRESCRIBED SUBOXONE
     Route: 065
  2. SUBOXONE [Suspect]
     Active Substance: BUPRENORPHINE HYDROCHLORIDE\NALOXONE HYDROCHLORIDE
     Indication: DRUG DEPENDENCE
     Dosage: 32 MG,DAILY, ABOUT 4 YEARS
     Route: 060
     Dates: start: 2012, end: 201601
  3. SUBOXONE [Suspect]
     Active Substance: BUPRENORPHINE HYDROCHLORIDE\NALOXONE HYDROCHLORIDE
     Dosage: SELF TAPER, 1.5 TO 3 STRIPS DAILY, ABOUT 2 MONTHS
     Route: 060
     Dates: start: 201601

REACTIONS (12)
  - Speech disorder [Not Recovered/Not Resolved]
  - Bone pain [Recovered/Resolved]
  - Therapy cessation [Recovered/Resolved]
  - Insomnia [Recovered/Resolved]
  - Intentional underdose [Not Recovered/Not Resolved]
  - Loss of consciousness [Recovered/Resolved]
  - Product preparation error [Not Recovered/Not Resolved]
  - Hallucination [Recovered/Resolved]
  - Substance abuse [Not Recovered/Not Resolved]
  - Product use issue [Recovered/Resolved]
  - Drug withdrawal syndrome [Recovered/Resolved]
  - Off label use [Recovered/Resolved]

NARRATIVE: CASE EVENT DATE: 2012
